FAERS Safety Report 19886189 (Version 8)
Quarter: 2022Q2

REPORT INFORMATION
  Report Type: Report from Study
  Country: NL (occurrence: NL)
  Receive Date: 20210928
  Receipt Date: 20220524
  Transmission Date: 20220721
  Serious: Yes (Other)
  Sender: FDA-Public Use
  Company Number: NL-ABBVIE-21K-114-4086181-00

PATIENT
  Sex: Male

DRUGS (5)
  1. CARBIDOPA\LEVODOPA [Suspect]
     Active Substance: CARBIDOPA\LEVODOPA
     Indication: Parkinson^s disease
     Route: 050
     Dates: start: 20180205
  2. CARBIDOPA\LEVODOPA [Suspect]
     Active Substance: CARBIDOPA\LEVODOPA
     Dosage: MD: 12.0ML, CD: 3.9 ML/H, ED: 3.3ML
     Route: 050
  3. CARBIDOPA\LEVODOPA [Suspect]
     Active Substance: CARBIDOPA\LEVODOPA
     Dosage: MD: 12.0ML, CD: 3.7 ML/H, ED: 3.3ML
     Route: 050
  4. CARBIDOPA\LEVODOPA [Suspect]
     Active Substance: CARBIDOPA\LEVODOPA
     Dosage: MD: 12.0 ML, CD: 3.4 ML/H, ED: 3.3 ML
     Route: 050
  5. BENSERAZIDE HYDROCHLORIDE\LEVODOPA [Concomitant]
     Active Substance: BENSERAZIDE HYDROCHLORIDE\LEVODOPA
     Indication: Parkinson^s disease

REACTIONS (23)
  - Ankle operation [Recovered/Resolved]
  - Mobility decreased [Not Recovered/Not Resolved]
  - Post procedural complication [Not Recovered/Not Resolved]
  - Device difficult to use [Unknown]
  - Infrequent bowel movements [Not Recovered/Not Resolved]
  - Fibroma [Not Recovered/Not Resolved]
  - Restlessness [Recovered/Resolved]
  - Fibroma [Not Recovered/Not Resolved]
  - Discomfort [Unknown]
  - Nocturia [Unknown]
  - Depressed mood [Not Recovered/Not Resolved]
  - Abnormal dreams [Recovered/Resolved]
  - Malaise [Unknown]
  - Fatigue [Not Recovered/Not Resolved]
  - Tremor [Not Recovered/Not Resolved]
  - Agitation [Recovered/Resolved]
  - Restlessness [Unknown]
  - On and off phenomenon [Unknown]
  - Dyskinesia [Not Recovered/Not Resolved]
  - Initial insomnia [Recovered/Resolved]
  - Hyperkinesia [Unknown]
  - Stoma site discharge [Not Recovered/Not Resolved]
  - Stoma site reaction [Not Recovered/Not Resolved]

NARRATIVE: CASE EVENT DATE: 20210101
